FAERS Safety Report 24992318 (Version 2)
Quarter: 2025Q1

REPORT INFORMATION
  Report Type: Report from Study
  Country: US (occurrence: US)
  Receive Date: 20250220
  Receipt Date: 20250305
  Transmission Date: 20250409
  Serious: Yes (Life-Threatening, Other)
  Sender: JOHNSON AND JOHNSON
  Company Number: US-JNJFOC-20250218507

PATIENT
  Age: 29 Year
  Sex: Male

DRUGS (2)
  1. ESKETAMINE [Suspect]
     Active Substance: ESKETAMINE
     Indication: Depression
     Route: 045
     Dates: start: 20250206, end: 20250206
  2. ESKETAMINE [Suspect]
     Active Substance: ESKETAMINE
     Route: 045
     Dates: start: 20250204, end: 20250204

REACTIONS (4)
  - Suicidal ideation [Not Recovered/Not Resolved]
  - Anxiety [Not Recovered/Not Resolved]
  - Sedation [Not Recovered/Not Resolved]
  - Dissociation [Recovered/Resolved]

NARRATIVE: CASE EVENT DATE: 20250206
